FAERS Safety Report 6933876-4 (Version None)
Quarter: 2010Q3

REPORT INFORMATION
  Report Type: 
  Country: None (occurrence: None)
  Receive Date: 20100820
  Receipt Date: 20100809
  Transmission Date: 20110219
  Serious: Yes (Hospitalization, Other)
  Sender: FDA-Public Use
  Company Number: US-PFIZER INC-2010076894

PATIENT
  Sex: Female

DRUGS (9)
  1. CHANTIX [Suspect]
     Indication: SMOKING CESSATION THERAPY
     Dosage: STARTER PACK
     Route: 048
     Dates: start: 20060506, end: 20080529
  2. CHANTIX [Suspect]
     Dosage: STARTER PACK AND ONE CHANTIX MONTH PACK 1MG
     Dates: start: 20080819, end: 20080903
  3. OXYCONTIN [Concomitant]
     Indication: BACK PAIN
     Dosage: UNK
     Dates: start: 20030101, end: 20080101
  4. CYMBALTA [Concomitant]
     Indication: DEPRESSION
     Dosage: UNK
     Dates: start: 20070101
  5. TRAZODONE [Concomitant]
     Indication: DEPRESSION
     Dosage: UNK
     Dates: start: 20070101, end: 20090101
  6. RANITIDINE [Concomitant]
     Indication: GASTROOESOPHAGEAL REFLUX DISEASE
     Dosage: UNK
     Dates: start: 20070101, end: 20090101
  7. OXYCODONE [Concomitant]
     Indication: BACK PAIN
     Dosage: UNK
     Dates: start: 20030101, end: 20090101
  8. DIAZEPAM [Concomitant]
     Indication: ANXIETY
     Dosage: UNK
     Dates: start: 20060101
  9. DIAZEPAM [Concomitant]
     Indication: DEPRESSION

REACTIONS (8)
  - ANXIETY [None]
  - CONVULSION [None]
  - DEPRESSION [None]
  - EXCORIATION [None]
  - LOSS OF CONSCIOUSNESS [None]
  - MULTIPLE INJURIES [None]
  - RIB FRACTURE [None]
  - ROTATOR CUFF SYNDROME [None]
